FAERS Safety Report 8525033-5 (Version None)
Quarter: 2012Q3

REPORT INFORMATION
  Report Type: 
  Country: None (occurrence: None)
  Receive Date: 20120720
  Receipt Date: 20120706
  Transmission Date: 20120928
  Serious: Yes (Other)
  Sender: FDA-Public Use
  Company Number: IT-MYLANLABS-2012S1013897

PATIENT
  Age: 50 Year
  Sex: Male

DRUGS (1)
  1. RAMIPRIL [Suspect]
     Indication: HYPERTENSION
     Route: 048
     Dates: start: 20120510, end: 20120610

REACTIONS (7)
  - OROPHARYNGEAL PAIN [None]
  - SWOLLEN TONGUE [None]
  - BLOOD PRESSURE INCREASED [None]
  - LYMPHADENOPATHY [None]
  - DYSPHAGIA [None]
  - COUGH [None]
  - PAIN IN JAW [None]
